FAERS Safety Report 6625793-4 (Version None)
Quarter: 2010Q1

REPORT INFORMATION
  Report Type: 
  Country: None (occurrence: None)
  Receive Date: 20100310
  Receipt Date: 20100304
  Transmission Date: 20100710
  Serious: Yes (Life-Threatening, Hospitalization)
  Sender: FDA-Public Use
  Company Number: JP-MERCK-1003USA00833

PATIENT
  Age: 88 Year
  Sex: Female

DRUGS (10)
  1. JANUVIA [Suspect]
     Route: 048
     Dates: start: 20100201
  2. BLOPRESS [Concomitant]
     Route: 048
  3. FERROMIA [Concomitant]
     Route: 048
  4. ASPIRIN [Concomitant]
     Route: 048
  5. SELOKEN [Concomitant]
     Route: 048
  6. PEPCID [Concomitant]
     Route: 048
  7. URINORM [Concomitant]
     Route: 048
  8. CRESTOR [Concomitant]
     Route: 048
  9. DIART [Concomitant]
     Route: 048
  10. NORVASC [Concomitant]
     Route: 048

REACTIONS (2)
  - CARDIAC ARREST [None]
  - HYPERKALAEMIA [None]
